FAERS Safety Report 7284450-4 (Version None)
Quarter: 2011Q1

REPORT INFORMATION
  Report Type: 
  Country: None (occurrence: None)
  Receive Date: 20110209
  Receipt Date: 20110203
  Transmission Date: 20110831
  Serious: Yes (Other)
  Sender: FDA-Public Use
  Company Number: JP-PFIZER INC-2011025256

PATIENT
  Age: 28 Year
  Sex: Female

DRUGS (4)
  1. PREDNISOLONE [Concomitant]
     Dosage: 1 MG/KG/DAY
     Route: 048
  2. COTRIM [Concomitant]
     Route: 048
  3. METHYLPREDNISOLONE SODIUM SUCCINATE [Suspect]
     Dosage: 1 G/DAY
     Route: 042
  4. CYCLOPHOSPHAMIDE [Concomitant]
     Dosage: 2 MG/KG/DAY
     Route: 048

REACTIONS (1)
  - BRONCHOPLEURAL FISTULA [None]
